FAERS Safety Report 18578734 (Version 2)
Quarter: 2020Q4

REPORT INFORMATION
  Report Type: Other
  Country: IT (occurrence: IT)
  Receive Date: 20201204
  Receipt Date: 20201215
  Transmission Date: 20210114
  Serious: No
  Sender: FDA-Public Use
  Company Number: IT-ROCHE-2725502

PATIENT
  Age: 44 Year
  Sex: Male
  Weight: 69 kg

DRUGS (17)
  1. OCRELIZUMAB. [Suspect]
     Active Substance: OCRELIZUMAB
     Indication: PRIMARY PROGRESSIVE MULTIPLE SCLEROSIS
     Dosage: 300 MG/250 ML
     Route: 042
     Dates: start: 20190930, end: 20190930
  2. OCRELIZUMAB. [Suspect]
     Active Substance: OCRELIZUMAB
     Dosage: 600 MG/500 ML
     Route: 042
     Dates: start: 20200507, end: 20200507
  3. CHLORPHENAMINE [Concomitant]
     Active Substance: CHLORPHENIRAMINE MALEATE
     Dosage: ONCE BEFORE INFUSION
     Route: 030
     Dates: start: 20190930, end: 20190930
  4. METHYLPREDNISOLONE. [Concomitant]
     Active Substance: METHYLPREDNISOLONE
     Route: 042
     Dates: start: 20200507, end: 20200507
  5. CHOLECALCIFEROL [Concomitant]
     Active Substance: CHOLECALCIFEROL
     Route: 048
     Dates: start: 201811
  6. PARACETAMOL [Concomitant]
     Active Substance: ACETAMINOPHEN
     Dosage: ONCE BEFORE INFUSION
     Route: 048
     Dates: start: 20191014, end: 20191014
  7. OCRELIZUMAB. [Suspect]
     Active Substance: OCRELIZUMAB
     Dosage: 300 MG/250 ML
     Route: 042
     Dates: start: 20191014, end: 20191014
  8. PARACETAMOL [Concomitant]
     Active Substance: ACETAMINOPHEN
     Dosage: ONCE BEFORE INFUSION
     Route: 048
     Dates: start: 20200507, end: 20200507
  9. OCRELIZUMAB. [Suspect]
     Active Substance: OCRELIZUMAB
     Dosage: 600 MG/500 ML
     Route: 042
     Dates: start: 20201123, end: 20201123
  10. PARACETAMOL [Concomitant]
     Active Substance: ACETAMINOPHEN
     Dosage: ONCE BEFORE INFUSION
     Route: 048
     Dates: start: 20201123, end: 20201123
  11. CHLORPHENAMINE [Concomitant]
     Active Substance: CHLORPHENIRAMINE MALEATE
     Dosage: ONCE BEFORE INFUSION
     Route: 030
     Dates: start: 20191014, end: 20191014
  12. LORATADINE. [Concomitant]
     Active Substance: LORATADINE
     Route: 048
     Dates: start: 20200506, end: 20200506
  13. PARACETAMOL [Concomitant]
     Active Substance: ACETAMINOPHEN
     Dosage: ONCE BEFORE INFUSION
     Route: 048
     Dates: start: 20190930, end: 20190930
  14. METHYLPREDNISOLONE. [Concomitant]
     Active Substance: METHYLPREDNISOLONE
     Route: 042
     Dates: start: 20190930, end: 20190930
  15. METHYLPREDNISOLONE. [Concomitant]
     Active Substance: METHYLPREDNISOLONE
     Route: 042
     Dates: start: 20191014, end: 20191014
  16. METHYLPREDNISOLONE. [Concomitant]
     Active Substance: METHYLPREDNISOLONE
     Route: 042
     Dates: start: 20201123, end: 20201123
  17. LORATADINE. [Concomitant]
     Active Substance: LORATADINE
     Route: 048
     Dates: start: 20201122, end: 20201122

REACTIONS (1)
  - COVID-19 [Recovered/Resolved]

NARRATIVE: CASE EVENT DATE: 20201101
